FAERS Safety Report 8872558 (Version 1)
Quarter: 2012Q4

REPORT INFORMATION
  Report Type: Report from Study
  Country: US (occurrence: US)
  Receive Date: 20121030
  Receipt Date: 20121030
  Transmission Date: 20130627
  Serious: Yes (Other)
  Sender: FDA-Public Use
  Company Number: US-ROCHE-1146207

PATIENT
  Sex: Female

DRUGS (4)
  1. PEG-INTERFERON ALFA 2A [Suspect]
     Indication: HEPATITIS C
     Route: 058
     Dates: start: 20121004
  2. RIBAVIRIN [Suspect]
     Indication: HEPATITIS C
     Dosage: divided dose
     Route: 048
     Dates: start: 20121004
  3. TELAPREVIR [Suspect]
     Indication: HEPATITIS C
     Route: 065
  4. OXYMORPHONE HYDROCHLORIDE [Suspect]
     Indication: BACK PAIN
     Route: 065

REACTIONS (8)
  - Basal cell carcinoma [Unknown]
  - Pyrexia [Unknown]
  - Depression [Unknown]
  - Nervousness [Unknown]
  - Alopecia [Unknown]
  - Lip blister [Unknown]
  - Headache [Unknown]
  - Chapped lips [Unknown]
